FAERS Safety Report 9698865 (Version 1)
Quarter: 2013Q4

REPORT INFORMATION
  Report Type: Spontaneous
  Country: CH (occurrence: CH)
  Receive Date: 20131120
  Receipt Date: 20131120
  Transmission Date: 20140711
  Serious: Yes (Hospitalization)
  Sender: FDA-Public Use
  Company Number: CH-ROCHE-1303023

PATIENT
  Age: 45 Year
  Sex: Male

DRUGS (7)
  1. VALIUM [Suspect]
     Indication: PRODUCT USED FOR UNKNOWN INDICATION
     Route: 048
     Dates: start: 20130828, end: 20130828
  2. CLOPIXOL [Suspect]
     Indication: PRODUCT USED FOR UNKNOWN INDICATION
     Route: 048
     Dates: start: 20130828, end: 20130828
  3. TEMESTA (SWITZERLAND) [Suspect]
     Indication: PRODUCT USED FOR UNKNOWN INDICATION
     Route: 048
     Dates: start: 20130828, end: 20130828
  4. ZYPREXA [Suspect]
     Indication: PRODUCT USED FOR UNKNOWN INDICATION
     Route: 048
  5. MIDAZOLAM ROCHE UNSPEC. [Concomitant]
     Route: 065
  6. PRIADEL CONTROLLED-RELEASE TABLETS (UK) [Concomitant]
     Route: 048
  7. INDERAL [Concomitant]
     Route: 048
     Dates: end: 20130828

REACTIONS (3)
  - Altered state of consciousness [Recovered/Resolved]
  - Pneumonia aspiration [Recovering/Resolving]
  - Respiratory failure [Recovered/Resolved]
